FAERS Safety Report 4852534-3 (Version None)
Quarter: 2005Q4

REPORT INFORMATION
  Report Type: 
  Country: None (occurrence: None)
  Receive Date: 20051213
  Receipt Date: 20051122
  Transmission Date: 20060501
  Serious: Yes (Hospitalization)
  Sender: FDA-Public Use
  Company Number: PHBS2005JP17271

PATIENT
  Age: 70 Year
  Sex: Female
  Weight: 55 kg

DRUGS (3)
  1. TEGRETOL [Suspect]
     Indication: EPILEPSY
     Dosage: 200 MG MORNING AND 400 MG EVENING
     Route: 048
     Dates: end: 20051128
  2. DEPAKENE [Concomitant]
     Indication: EPILEPSY
     Dosage: 1200 MG/DAY
     Route: 048
     Dates: end: 20051128
  3. VALPROIC ACID [Concomitant]
     Route: 048

REACTIONS (4)
  - CONCOMITANT DISEASE AGGRAVATED [None]
  - EPILEPSY [None]
  - PNEUMONIA ASPIRATION [None]
  - SLEEP APNOEA SYNDROME [None]
